FAERS Safety Report 6278141-6 (Version None)
Quarter: 2009Q3

REPORT INFORMATION
  Report Type: 
  Country: None (occurrence: None)
  Receive Date: 20090722
  Receipt Date: 20071112
  Transmission Date: 20100115
  Serious: Yes (Other)
  Sender: FDA-Public Use
  Company Number: US-ASTRAZENECA-2006UW05092

PATIENT
  Age: 48 Year
  Sex: Female
  Weight: 91.6 kg

DRUGS (27)
  1. SEROQUEL [Suspect]
     Indication: DEPRESSION
     Route: 048
     Dates: start: 20010101
  2. SEROQUEL [Suspect]
     Indication: BIPOLAR DISORDER
     Route: 048
     Dates: start: 20010101
  3. ZYPREXA [Suspect]
  4. CELEXA [Concomitant]
  5. VISTARIL [Concomitant]
  6. SYNTHROID [Concomitant]
  7. CLONIDINE [Concomitant]
  8. GLUCOPHAGE [Concomitant]
  9. PLAVIX [Concomitant]
  10. LITHIUM [Concomitant]
  11. NORVASC [Concomitant]
  12. BENICAR [Concomitant]
  13. LYRICA [Concomitant]
  14. IMIPRAMINE [Concomitant]
  15. INDERAL [Concomitant]
  16. LORTAB [Concomitant]
  17. CLONAZEPAM [Concomitant]
  18. ALTACE [Concomitant]
  19. CRESTOR [Concomitant]
     Dates: start: 20041026
  20. LIPITOR [Concomitant]
  21. TRICOR [Concomitant]
  22. METHYLPREDNISOLONE [Concomitant]
  23. AMITRIPTYLINE [Concomitant]
  24. GLUCOTROL [Concomitant]
  25. RISPERDAL [Concomitant]
  26. XANAX [Concomitant]
  27. NOVOLOG [Concomitant]

REACTIONS (3)
  - DIABETES MELLITUS [None]
  - DIABETIC FOOT [None]
  - DIABETIC NEPHROPATHY [None]
